FAERS Safety Report 5976881-7 (Version None)
Quarter: 2008Q4

REPORT INFORMATION
  Report Type: 
  Country: None (occurrence: None)
  Receive Date: 20081203
  Receipt Date: 20080213
  Transmission Date: 20090506
  Serious: No
  Sender: FDA-Public Use
  Company Number: US-AMGEN-KDL259535

PATIENT
  Sex: Male
  Weight: 102.2 kg

DRUGS (1)
  1. ENBREL [Suspect]
     Indication: ANKYLOSING SPONDYLITIS
     Route: 058
     Dates: start: 20060801, end: 20070801

REACTIONS (3)
  - ANKYLOSING SPONDYLITIS [None]
  - BLINDNESS UNILATERAL [None]
  - THERAPEUTIC RESPONSE DECREASED [None]
